FAERS Safety Report 10463792 (Version 1)
Quarter: 2014Q3

REPORT INFORMATION
  Report Type: Spontaneous
  Country: US (occurrence: None)
  Receive Date: 20140918
  Receipt Date: 20140918
  Transmission Date: 20150326
  Serious: Yes (Other)
  Sender: FDA-Public Use
  Company Number: None

PATIENT
  Age: 61 Year
  Sex: Female
  Weight: 53.52 kg

DRUGS (9)
  1. MULTI VITA [Concomitant]
  2. EXJADE [Suspect]
     Active Substance: DEFERASIROX
     Indication: SICKLE CELL ANAEMIA
     Route: 048
     Dates: start: 20120629
  3. PROCRIT [Concomitant]
     Active Substance: ERYTHROPOIETIN
  4. DILTIAZEM [Concomitant]
     Active Substance: DILTIAZEM
  5. HYDROCHLOROTH. CAP [Concomitant]
  6. FOLIC ACID. [Concomitant]
     Active Substance: FOLIC ACID
  7. CLONIDINE. [Concomitant]
     Active Substance: CLONIDINE
  8. ATENOLOL. [Concomitant]
     Active Substance: ATENOLOL
  9. NEFEDIPINE [Concomitant]

REACTIONS (3)
  - Diarrhoea [None]
  - Abdominal discomfort [None]
  - Nausea [None]

NARRATIVE: CASE EVENT DATE: 201408
